FAERS Safety Report 16969739 (Version 5)
Quarter: 2020Q1

REPORT INFORMATION
  Report Type: Spontaneous
  Country: DE (occurrence: DE)
  Receive Date: 20191029
  Receipt Date: 20200110
  Transmission Date: 20200409
  Serious: Yes (Life-Threatening, Other)
  Sender: FDA-Public Use
  Company Number: DE-MYLANLABS-2019M1101685

PATIENT
  Age: 75 Year
  Sex: Male

DRUGS (17)
  1. CIPRALEX [Interacting]
     Active Substance: ESCITALOPRAM OXALATE
     Indication: PRODUCT USED FOR UNKNOWN INDICATION
     Dosage: 15 MILLIGRAM, QD, (1X/DAY:QD)
     Route: 065
     Dates: start: 20090218, end: 20090223
  2. CIPRALEX [Interacting]
     Active Substance: ESCITALOPRAM OXALATE
     Dosage: 20 MILLIGRAM, QD, (1X/DAY:QD)
     Route: 065
     Dates: start: 20090224
  3. GALANTAMINE. [Suspect]
     Active Substance: GALANTAMINE
     Indication: PRODUCT USED FOR UNKNOWN INDICATION
     Dosage: 5 MILLIGRAM, QD
     Route: 065
     Dates: start: 20090205, end: 20090205
  4. GALANTAMINE. [Interacting]
     Active Substance: GALANTAMINE
     Dosage: 2.5 MILLIGRAM, QD
     Route: 065
     Dates: start: 20090206
  5. CALCIUMCARBONAT [Concomitant]
     Indication: PRODUCT USED FOR UNKNOWN INDICATION
     Dosage: 2 DOSAGE FORM, (DOSAGE FORM: UNKNOWN), QD
     Route: 065
  6. ESIDRIX [Interacting]
     Active Substance: HYDROCHLOROTHIAZIDE
     Dosage: 12.5 MILLIGRAM, QD ( 1X/DAY:QD)
     Route: 065
     Dates: end: 20090226
  7. CAPTOHEXAL [Interacting]
     Active Substance: CAPTOPRIL
     Dosage: 25 MILLIGRAM, QD, (1X/DAY:QD)
     Route: 065
     Dates: start: 20090206
  8. MARCUMAR [Concomitant]
     Active Substance: PHENPROCOUMON
     Indication: PRODUCT USED FOR UNKNOWN INDICATION
     Dosage: DOSAGE FORM: UNKNOWN
     Route: 065
  9. GALANTAMINE. [Interacting]
     Active Substance: GALANTAMINE
     Dosage: 8 MILLIGRAM, QD
     Route: 065
     Dates: start: 20090219
  10. CIPRALEX [Interacting]
     Active Substance: ESCITALOPRAM OXALATE
     Dosage: 10 MILLIGRAM, QD, (1X/DAY:QD)
     Route: 065
     Dates: start: 20090210, end: 20090217
  11. CAPTOHEXAL [Interacting]
     Active Substance: CAPTOPRIL
     Indication: PRODUCT USED FOR UNKNOWN INDICATION
     Dosage: 50 MILLIGRAM, QD, (1X/DAY:QD)
     Route: 065
     Dates: end: 20090205
  12. CIPRALEX [Interacting]
     Active Substance: ESCITALOPRAM OXALATE
     Dosage: 5 MILLIGRAM, QD, (1X/DAY:QD)
     Route: 065
     Dates: start: 20090204, end: 20090209
  13. AMLODIPINE [Concomitant]
     Active Substance: AMLODIPINE BESYLATE
     Indication: PRODUCT USED FOR UNKNOWN INDICATION
     Dosage: 5 MILLIGRAM, QD
     Route: 065
     Dates: start: 20090205, end: 20090205
  14. AMLODIPINE [Concomitant]
     Active Substance: AMLODIPINE BESYLATE
     Dosage: 2.5 MILLIGRAM, QD, (1X/DAY:QD)
     Route: 065
     Dates: start: 20090206
  15. DIPIPERON [Interacting]
     Active Substance: PIPAMPERONE
     Indication: PRODUCT USED FOR UNKNOWN INDICATION
     Dosage: 80 MILLIGRAM, QD, (1X/DAY:QD)
     Route: 065
     Dates: start: 20090219
  16. ESIDRIX [Interacting]
     Active Substance: HYDROCHLOROTHIAZIDE
     Indication: PRODUCT USED FOR UNKNOWN INDICATION
     Dosage: 25 MILLIGRAM, QD
     Route: 065
     Dates: start: 20090226
  17. TRAZODONE [Suspect]
     Active Substance: TRAZODONE HYDROCHLORIDE
     Indication: PRODUCT USED FOR UNKNOWN INDICATION
     Dosage: UNK
     Route: 065
     Dates: start: 2004

REACTIONS (5)
  - Electrocardiogram QT prolonged [Recovered/Resolved with Sequelae]
  - Torsade de pointes [Recovered/Resolved with Sequelae]
  - Syncope [Recovered/Resolved with Sequelae]
  - Drug interaction [Recovered/Resolved with Sequelae]
  - Cardio-respiratory arrest [Recovered/Resolved with Sequelae]

NARRATIVE: CASE EVENT DATE: 20090223
